FAERS Safety Report 9081103 (Version 1)
Quarter: 2013Q1

REPORT INFORMATION
  Report Type: Spontaneous
  Country: US (occurrence: US)
  Receive Date: 20130130
  Receipt Date: 20130130
  Transmission Date: 20140127
  Serious: Yes (Other)
  Sender: FDA-Public Use
  Company Number: US-ABBOTT-12P-163-0975758-00

PATIENT
  Age: 53 None
  Sex: Female

DRUGS (1)
  1. HUMIRA [Suspect]

REACTIONS (2)
  - Intraocular melanoma [Unknown]
  - Off label use [Unknown]
